FAERS Safety Report 5697976-1 (Version None)
Quarter: 2008Q2

REPORT INFORMATION
  Report Type: 
  Country: None (occurrence: None)
  Receive Date: 20080404
  Receipt Date: 20080404
  Transmission Date: 20081010
  Serious: Yes (Hospitalization)
  Sender: FDA-Public Use
  Company Number: None

PATIENT
  Age: 72 Year
  Sex: Male
  Weight: 70.22 kg

DRUGS (2)
  1. CIPROFLOXACIN [Suspect]
     Indication: URINARY TRACT INFECTION
     Dosage: 500MG BID PO
     Route: 048
     Dates: start: 20071213, end: 20071220
  2. NAPROXEN [Suspect]
     Indication: PAIN
     Dosage: 250MG EVERY DAY PO
     Route: 048
     Dates: start: 20071213, end: 20071220

REACTIONS (1)
  - RENAL FAILURE ACUTE [None]
